FAERS Safety Report 6277807-1 (Version None)
Quarter: 2009Q3

REPORT INFORMATION
  Report Type: 
  Country: None (occurrence: None)
  Receive Date: 20090722
  Receipt Date: 20090710
  Transmission Date: 20100115
  Serious: Yes (Other)
  Sender: FDA-Public Use
  Company Number: US-ELI_LILLY_AND_COMPANY-US200904006700

PATIENT
  Age: 38 Year
  Sex: Female
  Weight: 96.145 kg

DRUGS (6)
  1. CYMBALTA [Suspect]
     Indication: RHEUMATOID ARTHRITIS
     Dosage: 60 MG, UNK
     Dates: end: 20090101
  2. PREDNISONE TAB [Concomitant]
     Indication: RHEUMATOID ARTHRITIS
  3. TRAZODIL [Concomitant]
     Indication: DEPRESSION
  4. OXYCONTIN [Concomitant]
     Indication: RHEUMATOID ARTHRITIS
  5. LEVEMIR [Concomitant]
     Indication: TYPE 1 DIABETES MELLITUS
  6. SYNTHROID [Concomitant]
     Indication: HYPOTHYROIDISM

REACTIONS (4)
  - ALANINE AMINOTRANSFERASE INCREASED [None]
  - HEPATITIS [None]
  - OFF LABEL USE [None]
  - RENAL DISORDER [None]
